FAERS Safety Report 9999003 (Version 1)
Quarter: 2014Q1

REPORT INFORMATION
  Report Type: Spontaneous
  Country: US (occurrence: None)
  Receive Date: 20140311
  Receipt Date: 20140311
  Transmission Date: 20141002
  Serious: Yes (Other)
  Sender: FDA-Public Use
  Company Number: None

PATIENT
  Age: 24 Year
  Sex: Female
  Weight: 47.17 kg

DRUGS (1)
  1. DRAMAMINE [Suspect]
     Indication: MOTION SICKNESS
     Dates: start: 20140308, end: 20140309

REACTIONS (16)
  - Swollen tongue [None]
  - Lip swelling [None]
  - Hypoaesthesia oral [None]
  - Hypoaesthesia oral [None]
  - Pharyngeal hypoaesthesia [None]
  - Hypoaesthesia [None]
  - Hypoaesthesia [None]
  - Dry mouth [None]
  - Urticaria [None]
  - Pruritus [None]
  - Throat irritation [None]
  - Heart rate increased [None]
  - Dyspnoea [None]
  - Chest discomfort [None]
  - Frustration [None]
  - Hypoaesthesia [None]
